FAERS Safety Report 5976371-1 (Version None)
Quarter: 2008Q4

REPORT INFORMATION
  Report Type: 
  Country: None (occurrence: None)
  Receive Date: 20081202
  Receipt Date: 20081201
  Transmission Date: 20090506
  Serious: Yes (Death)
  Sender: FDA-Public Use
  Company Number: GB-B.I. PHARMACEUTICALS,INC./RIDGEFIELD-2008-BP-08875BP

PATIENT
  Age: 3 Month
  Sex: Male

DRUGS (5)
  1. VIRAMUNE [Suspect]
     Indication: HIV INFECTION
     Route: 064
  2. COMBIVIR [Suspect]
     Indication: HIV INFECTION
     Route: 064
  3. KALETRA [Suspect]
     Indication: HIV INFECTION
     Route: 064
  4. ZIDOVUDINE [Suspect]
     Indication: HIV INFECTION
     Route: 064
  5. SEPTRIN [Concomitant]
     Route: 065

REACTIONS (1)
  - DEATH NEONATAL [None]
